FAERS Safety Report 19805802 (Version 1)
Quarter: 2021Q3

REPORT INFORMATION
  Report Type: Spontaneous
  Country: US (occurrence: US)
  Receive Date: 20210908
  Receipt Date: 20210908
  Transmission Date: 20211014
  Serious: No
  Sender: FDA-Public Use
  Company Number: US-ASTELLAS-2020US043380

PATIENT
  Sex: Male

DRUGS (1)
  1. XTANDI [Suspect]
     Active Substance: ENZALUTAMIDE
     Indication: PRODUCT USED FOR UNKNOWN INDICATION
     Dosage: 80 MG, TWICE DAILY (2 IN THE MORNING AND 2 AT NIGHT)
     Route: 065

REACTIONS (4)
  - Confusional state [Unknown]
  - Product availability issue [Unknown]
  - Memory impairment [Unknown]
  - Off label use [Unknown]
